FAERS Safety Report 18460590 (Version 3)
Quarter: 2021Q1

REPORT INFORMATION
  Report Type: Report from Study
  Country: DE (occurrence: DE)
  Receive Date: 20201104
  Receipt Date: 20210119
  Transmission Date: 20210419
  Serious: Yes (Death, Other)
  Sender: FDA-Public Use
  Company Number: DE-SUN PHARMACEUTICAL INDUSTRIES LTD-2020R1-266065

PATIENT
  Age: 31 Year
  Sex: Female

DRUGS (30)
  1. ETORICOXIB. [Suspect]
     Active Substance: ETORICOXIB
     Indication: COMPLETED SUICIDE
     Dosage: UNK
     Route: 065
  2. MORPHINE [Suspect]
     Active Substance: MORPHINE
     Indication: PRODUCT USED FOR UNKNOWN INDICATION
     Dosage: UNK
     Route: 065
  3. TETRAMISOLE [Suspect]
     Active Substance: TETRAMISOLE
     Dosage: UNK
     Route: 065
  4. CODEINE [Suspect]
     Active Substance: CODEINE
     Indication: PRODUCT USED FOR UNKNOWN INDICATION
     Dosage: UNK
     Route: 065
  5. TETRAMISOLE [Suspect]
     Active Substance: TETRAMISOLE
     Indication: PRODUCT USED FOR UNKNOWN INDICATION
     Dosage: UNK
     Route: 065
  6. TEMAZEPAM. [Suspect]
     Active Substance: TEMAZEPAM
     Indication: COMPLETED SUICIDE
  7. BENZOYLECGONINE [Suspect]
     Active Substance: BENZOYLECGONINE
     Indication: PRODUCT USED FOR UNKNOWN INDICATION
     Dosage: UNK
     Route: 065
  8. DIPHENHYDRAMINE. [Suspect]
     Active Substance: DIPHENHYDRAMINE
     Indication: COMPLETED SUICIDE
     Dosage: UNK ()
     Route: 065
  9. CAFFEINE. [Suspect]
     Active Substance: CAFFEINE
     Indication: COMPLETED SUICIDE
     Dosage: UNK
     Route: 065
  10. OPIPRAMOL [Suspect]
     Active Substance: OPIPRAMOL
     Indication: COMPLETED SUICIDE
  11. CHLOROTHEOPHYLLINE [Suspect]
     Active Substance: CHLORTHEOPHYLLINE
     Indication: COMPLETED SUICIDE
  12. BENZOYLECGONINE [Suspect]
     Active Substance: BENZOYLECGONINE
     Indication: PRODUCT USED FOR UNKNOWN INDICATION
     Dosage: UNK ()
     Route: 065
  13. 6?MONOACETYLMORPHINE [Suspect]
     Active Substance: 6-ACETYLMORPHINE
     Indication: PRODUCT USED FOR UNKNOWN INDICATION
     Dosage: UNK
     Route: 065
  14. AMPHETAMINE [Suspect]
     Active Substance: AMPHETAMINE
     Indication: COMPLETED SUICIDE
     Dosage: UNK
     Route: 065
  15. OPIPRAMOL [Suspect]
     Active Substance: OPIPRAMOL
     Indication: COMPLETED SUICIDE
     Dosage: UNK
     Route: 065
  16. METHADONE [Suspect]
     Active Substance: METHADONE HYDROCHLORIDE
     Indication: PRODUCT USED FOR UNKNOWN INDICATION
     Dosage: UNK
     Route: 065
  17. COCAINE [Suspect]
     Active Substance: COCAINE
     Indication: PRODUCT USED FOR UNKNOWN INDICATION
     Dosage: UNK
     Route: 065
  18. TEMAZEPAM. [Suspect]
     Active Substance: TEMAZEPAM
     Indication: COMPLETED SUICIDE
     Dosage: UNK
     Route: 065
  19. TETRAMISOLE [Suspect]
     Active Substance: TETRAMISOLE
     Indication: COMPLETED SUICIDE
  20. CHLOROTHEOPHYLLINE [Suspect]
     Active Substance: CHLORTHEOPHYLLINE
     Indication: COMPLETED SUICIDE
     Dosage: UNK
     Route: 065
  21. BENZOYLECGONINE [Suspect]
     Active Substance: BENZOYLECGONINE
     Indication: PRODUCT USED FOR UNKNOWN INDICATION
     Dosage: UNK ()
     Route: 065
  22. DIAZEPAM. [Suspect]
     Active Substance: DIAZEPAM
     Indication: COMPLETED SUICIDE
     Dosage: UNK
     Route: 065
  23. DIPHENHYDRAMINE. [Suspect]
     Active Substance: DIPHENHYDRAMINE
     Indication: PRODUCT USED FOR UNKNOWN INDICATION
     Dosage: UNK
     Route: 065
  24. DIPHENHYDRAMINE. [Suspect]
     Active Substance: DIPHENHYDRAMINE
     Indication: COMPLETED SUICIDE
     Dosage: UNK ()
     Route: 065
  25. NORDAZEPAM [Suspect]
     Active Substance: NORDAZEPAM
     Indication: COMPLETED SUICIDE
     Dosage: UNK ()
     Route: 065
  26. NORDAZEPAM [Suspect]
     Active Substance: NORDAZEPAM
     Indication: COMPLETED SUICIDE
     Dosage: UNK ()
     Route: 065
  27. AMPHETAMINE [Suspect]
     Active Substance: AMPHETAMINE
     Indication: COMPLETED SUICIDE
  28. DIAZEPAM. [Suspect]
     Active Substance: DIAZEPAM
     Indication: COMPLETED SUICIDE
  29. TETRAZEPAM [Suspect]
     Active Substance: TETRAZEPAM
     Indication: PRODUCT USED FOR UNKNOWN INDICATION
     Dosage: UNK
     Route: 065
  30. TETRAZEPAM [Suspect]
     Active Substance: TETRAZEPAM
     Indication: PRODUCT USED FOR UNKNOWN INDICATION

REACTIONS (4)
  - Product use issue [Fatal]
  - Suspected suicide [Fatal]
  - Drug abuse [Fatal]
  - Toxicity to various agents [Fatal]
